FAERS Safety Report 9125174 (Version 2)
Quarter: 2013Q3

REPORT INFORMATION
  Report Type: Spontaneous
  Country: AU (occurrence: AU)
  Receive Date: 20130121
  Receipt Date: 20130802
  Transmission Date: 20140515
  Serious: Yes (Hospitalization, Other)
  Sender: FDA-Public Use
  Company Number: AU-ABBOTT-13P-008-1036349-00

PATIENT
  Age: 34 Year
  Sex: Female

DRUGS (2)
  1. HUMIRA [Suspect]
     Indication: PSORIATIC ARTHROPATHY
     Route: 058
     Dates: start: 20120701
  2. PAIN RELIEF MEDICATION [Concomitant]
     Indication: ARTHRITIS

REACTIONS (4)
  - Renal failure acute [Recovered/Resolved]
  - Infection [Unknown]
  - Post procedural sepsis [Recovered/Resolved]
  - Abdominal sepsis [Recovered/Resolved]
